FAERS Safety Report 12333574 (Version 1)
Quarter: 2016Q2

REPORT INFORMATION
  Report Type: Spontaneous
  Country: US (occurrence: US)
  Receive Date: 20160504
  Receipt Date: 20160504
  Transmission Date: 20160815
  Serious: No
  Sender: FDA-Public Use
  Company Number: US-ROCHE-1687543

PATIENT
  Sex: Male
  Weight: 97.61 kg

DRUGS (1)
  1. ESBRIET [Suspect]
     Active Substance: PIRFENIDONE
     Indication: IDIOPATHIC PULMONARY FIBROSIS
     Dosage: 3 CAPSULES 3 TIMES A DAY
     Route: 048
     Dates: start: 20150602

REACTIONS (6)
  - Weight decreased [Unknown]
  - Constipation [Unknown]
  - Gastrooesophageal reflux disease [Unknown]
  - Drug dose omission [Unknown]
  - Fluid retention [Unknown]
  - Peripheral swelling [Unknown]
